FAERS Safety Report 5956287-7 (Version None)
Quarter: 2008Q4

REPORT INFORMATION
  Report Type: 
  Country: None (occurrence: None)
  Receive Date: 20081112
  Receipt Date: 20081103
  Transmission Date: 20090506
  Serious: Yes (Hospitalization, Other)
  Sender: FDA-Public Use
  Company Number: 2008AP002989

PATIENT
  Age: 16 Year
  Sex: Female

DRUGS (8)
  1. OXCARBAZEPINE TABLETS [Suspect]
  2. CARBAMAZEPINE [Suspect]
  3. ZYVOX [Suspect]
     Indication: PNEUMONIA
     Dosage: 1200 MG; QD; IV
     Route: 042
     Dates: start: 20080403, end: 20080405
  4. CLINDAMYCIN HCL [Suspect]
     Indication: PNEUMONIA
     Dosage: IV
     Route: 042
  5. LEVOFLOXACIN [Suspect]
  6. FLUCONAZOLE [Concomitant]
  7. DIAZEPAM [Concomitant]
  8. IBUPROFEN [Concomitant]

REACTIONS (5)
  - IRRITABILITY [None]
  - PNEUMONIA [None]
  - PYREXIA [None]
  - SCREAMING [None]
  - SEROTONIN SYNDROME [None]
